FAERS Safety Report 4836393-0 (Version None)
Quarter: 2005Q4

REPORT INFORMATION
  Report Type: 
  Country: None (occurrence: None)
  Receive Date: 20051123
  Receipt Date: 20051116
  Transmission Date: 20060501
  Serious: Yes (Other)
  Sender: FDA-Public Use
  Company Number: AU-ROCHE-425240

PATIENT
  Age: 53 Year
  Sex: Female

DRUGS (3)
  1. PEG-INTERFERON ALFA 2A (RO 25-8310) [Suspect]
     Indication: HEPATITIS C
     Dosage: FORM = INJECTION
     Route: 058
     Dates: start: 20050601, end: 20050810
  2. RIBAVIRIN [Suspect]
     Indication: HEPATITIS C
     Route: 048
     Dates: start: 20050601, end: 20050810
  3. ACETAMINOPHEN W/ CODEINE [Concomitant]
     Dates: start: 20050801

REACTIONS (10)
  - CEREBRAL INFARCTION [None]
  - FALL [None]
  - HYPOAESTHESIA [None]
  - MUSCULOSKELETAL STIFFNESS [None]
  - NECK PAIN [None]
  - PERIORBITAL HAEMATOMA [None]
  - PHOTOPHOBIA [None]
  - THERAPY NON-RESPONDER [None]
  - VISUAL DISTURBANCE [None]
  - VISUAL FIELD DEFECT [None]
